FAERS Safety Report 14561556 (Version 1)
Quarter: 2018Q1

REPORT INFORMATION
  Report Type: Spontaneous
  Country: US (occurrence: US)
  Receive Date: 20180222
  Receipt Date: 20180222
  Transmission Date: 20180509
  Serious: No
  Sender: FDA-Public Use
  Company Number: US-TEVA-753509ACC

PATIENT
  Sex: Female

DRUGS (1)
  1. CETIRIZINE HYDROCHLORIDE-SEUDOEPHEDRINE HYDROCHLORIDE ER 176 [Suspect]
     Active Substance: CETIRIZINE HYDROCHLORIDE\PSEUDOEPHEDRINE HYDROCHLORIDE
     Indication: HEADACHE
     Dosage: 1 DF = CETIRIZINE HYDROCHLORIDE 5 MG + PSEUDOEPHEDRINE HYDROCHLORIDE 120 MG
     Route: 048
     Dates: start: 201703

REACTIONS (1)
  - Drug ineffective for unapproved indication [Unknown]
